FAERS Safety Report 23588247 (Version 1)
Quarter: 2024Q1

REPORT INFORMATION
  Report Type: Spontaneous
  Country: KR (occurrence: KR)
  Receive Date: 20240302
  Receipt Date: 20240302
  Transmission Date: 20240410
  Serious: Yes (Other)
  Sender: FDA-Public Use
  Company Number: KR-BAYER-2024A031131

PATIENT
  Age: 76 Year
  Sex: Female

DRUGS (6)
  1. XARELTO [Suspect]
     Active Substance: RIVAROXABAN
     Indication: Atrial fibrillation
     Dosage: 1 DF, QD
     Route: 048
     Dates: start: 20200319
  2. XARELTO [Suspect]
     Active Substance: RIVAROXABAN
     Indication: Atrial flutter
     Route: 048
  3. DILTIAZEM HYDROCHLORIDE [Concomitant]
     Active Substance: DILTIAZEM HYDROCHLORIDE
     Dosage: 1 DF
     Dates: start: 20200319
  4. CANDESARTAN CILEXETIL [Concomitant]
     Active Substance: CANDESARTAN CILEXETIL
     Dosage: 1 DF
     Dates: start: 20200319
  5. ATORVASTATIN CALCIUM [Concomitant]
     Active Substance: ATORVASTATIN CALCIUM
     Dosage: 1 DF
     Dates: start: 20200319
  6. LAFUTIDINE [Concomitant]
     Active Substance: LAFUTIDINE
     Dosage: 1 DF
     Dates: start: 20200319

REACTIONS (1)
  - Facial paralysis [Recovered/Resolved]

NARRATIVE: CASE EVENT DATE: 20200319
